FAERS Safety Report 8028719 (Version 2)
Quarter: 2013Q2

REPORT INFORMATION
  Report Type: Spontaneous
  Country: US (occurrence: None)
  Receive Date: 20110531
  Receipt Date: 20120601
  Transmission Date: 20140414
  Serious: Yes (Other)
  Sender: FDA-Public Use
  Company Number: 308362

PATIENT
  Age: 65 Year
  Sex: Female
  Weight: 97.5 kg

DRUGS (7)
  1. ACTIVELLA [Suspect]
     Indication: HOT FLUSH
     Route: 048
     Dates: start: 20001017, end: 2001
  2. PROVERA [Suspect]
     Indication: HOT FLUSH
     Route: 048
     Dates: start: 199601, end: 199901
  3. CLIMARA [Suspect]
     Indication: HOT FLUSH
     Route: 061
     Dates: start: 199601, end: 199901
  4. COMBIPATCH [Suspect]
     Indication: PRODUCT USED FOR UNKNOWN INDICATION
     Dates: start: 199905, end: 200008
  5. SYNTHROID (LEVOTHYROXINE SODIUM) [Concomitant]
  6. TRIAMTERENE (TRIAMTERENE) [Concomitant]
  7. ENALAPRIL (ENALAPRIL) [Concomitant]

REACTIONS (1)
  - BREAST CANCER [None]
